FAERS Safety Report 9542728 (Version 2)
Quarter: 2013Q4

REPORT INFORMATION
  Report Type: Spontaneous
  Country: US (occurrence: US)
  Receive Date: 20130923
  Receipt Date: 20131002
  Transmission Date: 20140711
  Serious: No
  Sender: FDA-Public Use
  Company Number: US-PFIZER INC-2013270249

PATIENT
  Age: 63 Year
  Sex: Female
  Weight: 36.28 kg

DRUGS (2)
  1. ADVIL [Suspect]
     Indication: HEADACHE
     Dosage: UNK
     Route: 048
  2. ADVIL [Suspect]
     Indication: HEADACHE
     Dosage: UNK, ONCE
     Route: 048
     Dates: start: 201309, end: 201309

REACTIONS (3)
  - Wrong technique in drug usage process [Unknown]
  - Dyspepsia [Recovered/Resolved with Sequelae]
  - Throat irritation [Recovered/Resolved]
